FAERS Safety Report 7827503-1 (Version None)
Quarter: 2011Q4

REPORT INFORMATION
  Report Type: 
  Country: None (occurrence: None)
  Receive Date: 20111020
  Receipt Date: 20111018
  Transmission Date: 20120403
  Serious: Yes (Other)
  Sender: FDA-Public Use
  Company Number: US-ROCHE-1005632

PATIENT
  Age: 47 Year
  Sex: Female

DRUGS (17)
  1. HERCEPTIN [Suspect]
     Dosage: 6 CYCLES
     Dates: start: 20081201
  2. XELODA [Suspect]
     Dosage: 2 CYCLES
     Dates: start: 20090401
  3. HERCEPTIN [Suspect]
     Indication: BREAST CANCER METASTATIC
     Dosage: 3 CYCLES
  4. HERCEPTIN [Suspect]
     Dosage: 1 MORE CYCLE
     Dates: start: 20070801
  5. ABRAXANE [Suspect]
     Indication: METASTASES TO LUNG
     Dosage: 4 CYCLES+ 2 CYCLES
     Dates: start: 20110301
  6. ZOMETA [Suspect]
     Indication: METASTASES TO BONE
  7. XELODA [Suspect]
     Indication: BREAST CANCER METASTATIC
     Dosage: 2 CYCLES
     Dates: start: 20081201
  8. ZOMETA [Suspect]
     Indication: METASTASES TO LIVER
  9. VINORELBINE [Concomitant]
     Indication: METASTASES TO LUNG
     Dosage: 6 CYCLES
     Dates: start: 20081201
  10. IXEMPRA KIT [Concomitant]
     Dosage: 2 CYCLES + 2 CYCLES
     Dates: start: 20090401, end: 20090721
  11. IXEMPRA KIT [Concomitant]
  12. XELODA [Suspect]
     Dosage: 2 CYCLES FINISHED ON 21 JULY 2009
  13. ABRAXANE [Suspect]
     Indication: METASTASES TO BONE
  14. ZOMETA [Suspect]
     Indication: METASTASES TO LUNG
     Dosage: 4 CYCLES+ 2 CYCLES
     Dates: start: 20110301
  15. LAPATINIB [Concomitant]
     Dates: start: 20070801
  16. HERCEPTIN [Suspect]
     Dosage: 2 CYCLES
     Dates: start: 20090401
  17. ABRAXANE [Suspect]
     Indication: METASTASES TO LIVER

REACTIONS (2)
  - HYPOTENSION [None]
  - EJECTION FRACTION DECREASED [None]
